FAERS Safety Report 24857609 (Version 2)
Quarter: 2025Q1

REPORT INFORMATION
  Report Type: Spontaneous
  Country: KR (occurrence: KR)
  Receive Date: 20250117
  Receipt Date: 20250124
  Transmission Date: 20250408
  Serious: Yes (Other)
  Sender: ABBVIE
  Company Number: KR-ABBVIE-6088651

PATIENT
  Age: 48 Year
  Sex: Male

DRUGS (2)
  1. HUMIRA [Suspect]
     Active Substance: ADALIMUMAB
     Indication: Hidradenitis
     Dosage: STRENGTH: 40MG/0.4ML?FORM STRENGTH UNITS: 40 MILLIGRAM
     Route: 058
     Dates: end: 20240701
  2. HUMIRA [Suspect]
     Active Substance: ADALIMUMAB
     Route: 058

REACTIONS (4)
  - Cerebral haemorrhage [Recovering/Resolving]
  - Drug ineffective [Unknown]
  - Hidradenitis [Unknown]
  - Skin graft [Unknown]

NARRATIVE: CASE EVENT DATE: 20240702
